FAERS Safety Report 8179105 (Version 4)
Quarter: 2013Q3

REPORT INFORMATION
  Report Type: Report from Study
  Country: US (occurrence: US)
  Receive Date: 20111013
  Receipt Date: 20130805
  Transmission Date: 20140515
  Serious: Yes (Hospitalization)
  Sender: FDA-Public Use
  Company Number: US-UCBSA-042777

PATIENT
  Age: 49 Year
  Sex: Female
  Weight: 73 kg

DRUGS (33)
  1. CIMZIA [Suspect]
     Indication: CROHN^S DISEASE
     Route: 058
     Dates: start: 20110704
  2. CIMZIA [Suspect]
     Indication: CROHN^S DISEASE
     Route: 058
     Dates: start: 20110414, end: 20110609
  3. CIMZIA [Suspect]
     Indication: CROHN^S DISEASE
     Route: 058
     Dates: start: 20100509, end: 20110218
  4. CIMZIA [Suspect]
     Indication: CROHN^S DISEASE
     Route: 058
     Dates: start: 20100419, end: 2010
  5. CIMZIA [Suspect]
     Indication: CROHN^S DISEASE
     Route: 058
     Dates: start: 20100104, end: 20100303
  6. CIMZIA [Suspect]
     Indication: CROHN^S DISEASE
     Route: 058
     Dates: start: 20091109, end: 20091207
  7. ALLEGRA [Concomitant]
     Indication: SEASONAL ALLERGY
     Dosage: 2 SL BID
     Route: 060
     Dates: start: 20100217
  8. BENADRYL [Concomitant]
     Indication: MOTION SICKNESS
     Dosage: 25-50 MG (25 MG 1-2) EVERY 4 HOURS
     Route: 048
     Dates: start: 2010
  9. BENADRYL [Concomitant]
     Indication: RASH
     Dosage: 25-50 MG (25 MG 1-2) EVERY 4 HOURS
     Route: 048
     Dates: start: 2010
  10. ALBUTEROL [Concomitant]
     Indication: DYSPNOEA
     Dosage: 90 MCG/ACT. 2 PUFFS
     Dates: start: 2010
  11. AMITRIPTYLINE [Concomitant]
     Indication: DEPRESSION
     Route: 048
     Dates: start: 2009
  12. METHOTREXATE [Concomitant]
     Indication: CROHN^S DISEASE
     Dates: start: 20110503
  13. METHOTREXATE [Concomitant]
     Indication: CROHN^S DISEASE
     Dates: start: 200905, end: 20110309
  14. METHOTREXATE [Concomitant]
     Indication: CROHN^S DISEASE
     Dates: start: 20080703, end: 20090304
  15. METHOTREXATE [Concomitant]
     Indication: CROHN^S DISEASE
     Dates: start: 200710, end: 200801
  16. METHOTREXATE [Concomitant]
     Indication: CROHN^S DISEASE
     Dates: start: 2000, end: 2002
  17. CEFEPIME [Concomitant]
     Indication: CATHETER SITE INFECTION
     Dosage: 2 GM
     Route: 042
     Dates: start: 20110921, end: 20110921
  18. CEFEPIME [Concomitant]
     Indication: CATHETER SITE INFECTION
     Dosage: 1 GM
     Route: 042
     Dates: start: 20110922, end: 20110923
  19. ACETAMINOPHEN [Concomitant]
     Indication: PAIN
     Dosage: 100 MG
     Route: 048
  20. ACETAMINOPHEN [Concomitant]
     Indication: PAIN
     Dosage: 1000 MG
     Route: 048
  21. ACETAMINOPHEN [Concomitant]
     Indication: PAIN
     Route: 048
     Dates: start: 20110309, end: 20110313
  22. ACETAMINOPHEN [Concomitant]
     Indication: PAIN
     Dosage: 500-1000 MG
     Route: 048
  23. ALTAPLASE [Concomitant]
     Dosage: 2 MG
     Route: 042
     Dates: start: 20100427
  24. LOPERAMIDE [Concomitant]
     Indication: CROHN^S DISEASE
     Dosage: AS NECESSARY
     Route: 048
     Dates: start: 2009
  25. LOPERAMIDE [Concomitant]
     Indication: DIARRHOEA
     Dosage: AS NECESSARY
     Route: 048
     Dates: start: 2009
  26. CLONAZEPAM [Concomitant]
     Indication: ANXIETY
     Route: 048
     Dates: start: 20100425
  27. CITALOPRAM [Concomitant]
     Indication: DEPRESSION
     Dosage: 60 MG
     Route: 048
     Dates: start: 20110426
  28. CYANOCOBALAMIN [Concomitant]
     Indication: SUPPLEMENTATION THERAPY
     Route: 030
     Dates: start: 2007
  29. FENTANYL [Concomitant]
     Indication: PAIN
     Dosage: 50 UNITS
     Route: 042
     Dates: start: 20100527
  30. FOLIC ACID [Concomitant]
     Indication: SUPPLEMENTATION THERAPY
     Route: 048
     Dates: start: 200905
  31. HEPARIN FLUSH [Concomitant]
     Dosage: 50 UNITS
     Route: 042
     Dates: start: 200912
  32. KETOROLAC [Concomitant]
     Dosage: 30 MG
     Route: 042
     Dates: start: 20100912
  33. NYSTATIN [Concomitant]

REACTIONS (1)
  - Pyrexia [Recovered/Resolved]
